FAERS Safety Report 15357970 (Version 3)
Quarter: 2018Q4

REPORT INFORMATION
  Report Type: Report from Study
  Country: US (occurrence: US)
  Receive Date: 20180906
  Receipt Date: 20181019
  Transmission Date: 20190204
  Serious: Yes (Hospitalization, Other)
  Sender: FDA-Public Use
  Company Number: US-MYLANLABS-2018M1064693

PATIENT
  Age: 1 Year
  Sex: Male
  Weight: 11.4 kg

DRUGS (4)
  1. DACTINOMYCIN [Suspect]
     Active Substance: DACTINOMYCIN
     Indication: EMBRYONAL RHABDOMYOSARCOMA
     Dosage: UNK UNK, CYCLE
     Route: 042
     Dates: start: 20180514
  2. CYCLOPHOSPHAMIDE. [Suspect]
     Active Substance: CYCLOPHOSPHAMIDE
     Indication: EMBRYONAL RHABDOMYOSARCOMA
     Dosage: 60 MINUTES ON DAY 1 OF CYCLES 1 AND 3, CYCLE
     Route: 042
     Dates: start: 20180514
  3. VINCRISTINE SULFATE. [Suspect]
     Active Substance: VINCRISTINE SULFATE
     Indication: EMBRYONAL RHABDOMYOSARCOMA
     Dosage: OVER 1 MINUTE INFUSION VIA MINIBAG ON DAYS 1, 8, AND 15, CYCLE
     Route: 042
     Dates: start: 20180514, end: 20180521
  4. TEMSIROLIMUS. [Suspect]
     Active Substance: TEMSIROLIMUS
     Indication: EMBRYONAL RHABDOMYOSARCOMA
     Dosage: OVER 30-60 MINUTES ON DAYS 1, 8, AND 15, CYCLE
     Route: 042
     Dates: start: 20180514, end: 20180521

REACTIONS (2)
  - Febrile neutropenia [Recovering/Resolving]
  - Stomatitis [Recovering/Resolving]

NARRATIVE: CASE EVENT DATE: 20180519
